FAERS Safety Report 19390161 (Version 3)
Quarter: 2021Q3

REPORT INFORMATION
  Report Type: Report from Study
  Country: BR (occurrence: BR)
  Receive Date: 20210608
  Receipt Date: 20210805
  Transmission Date: 20211014
  Serious: Yes (Other)
  Sender: FDA-Public Use
  Company Number: BR-TAKEDA-BR201918374

PATIENT
  Age: 10 Year
  Sex: Male
  Weight: 25 kg

DRUGS (5)
  1. IDURSULFASE [Suspect]
     Active Substance: IDURSULFASE
     Dosage: 2 DOSAGE FORM
     Route: 065
     Dates: start: 20191104
  2. IDURSULFASE [Suspect]
     Active Substance: IDURSULFASE
     Dosage: 2 DOSAGE FORM, 1/WEEK
     Route: 050
  3. IDURSULFASE [Suspect]
     Active Substance: IDURSULFASE
     Dosage: 2 DOSAGE FORM
     Route: 042
  4. IDURSULFASE [Suspect]
     Active Substance: IDURSULFASE
     Indication: MUCOPOLYSACCHARIDOSIS II
     Dosage: UNK
     Route: 042
     Dates: start: 20190910
  5. IDURSULFASE [Suspect]
     Active Substance: IDURSULFASE
     Dosage: 2 DOSAGE FORM
     Route: 065
     Dates: start: 20180411

REACTIONS (9)
  - Suspected COVID-19 [Unknown]
  - Pyrexia [Unknown]
  - Off label use [Unknown]
  - Therapy interrupted [Unknown]
  - Influenza [Unknown]
  - Inappropriate schedule of product administration [Unknown]
  - Product availability issue [Unknown]
  - Faeces discoloured [Unknown]
  - Gait disturbance [Unknown]

NARRATIVE: CASE EVENT DATE: 202010
